FAERS Safety Report 7314634-8 (Version None)
Quarter: 2011Q1

REPORT INFORMATION
  Report Type: 
  Country: None (occurrence: None)
  Receive Date: 20110225
  Receipt Date: 20110110
  Transmission Date: 20110831
  Serious: No
  Sender: FDA-Public Use
  Company Number: US-MYLANLABS-2010S1019447

PATIENT
  Age: 15 Year
  Sex: Male

DRUGS (4)
  1. CLARAVIS [Suspect]
     Indication: ACNE CYSTIC
     Route: 048
     Dates: start: 20100901, end: 20101021
  2. AMNESTEEM [Suspect]
     Indication: ACNE
     Route: 048
     Dates: start: 20100705, end: 20100901
  3. CLARAVIS [Suspect]
     Indication: ACNE
     Route: 048
     Dates: start: 20100901, end: 20101021
  4. AMNESTEEM [Suspect]
     Indication: ACNE CYSTIC
     Route: 048
     Dates: start: 20100705, end: 20100901

REACTIONS (5)
  - ARTHRALGIA [None]
  - MYALGIA [None]
  - EPISTAXIS [None]
  - HEADACHE [None]
  - LIP DRY [None]
